FAERS Safety Report 25030126 (Version 6)
Quarter: 2025Q3

REPORT INFORMATION
  Report Type: Report from Study
  Country: US (occurrence: US)
  Receive Date: 20250303
  Receipt Date: 20250704
  Transmission Date: 20251020
  Serious: Yes (Hospitalization, Other)
  Sender: GILEAD
  Company Number: US-GILEAD-2025-0705491

PATIENT
  Sex: Male

DRUGS (14)
  1. AZTREONAM LYSINE [Suspect]
     Active Substance: AZTREONAM LYSINE
     Indication: Microbiology test abnormal
     Dosage: 75 MG, TID (28 DAYS ON AND 28 DAYS OFF)
     Route: 055
  2. AZTREONAM LYSINE [Suspect]
     Active Substance: AZTREONAM LYSINE
     Indication: Illness
     Dosage: INHALE 1 VIAL (75 MG) VIA ALTERA NEBULIZER THREE TIMES DAILY FOR 28 DAYS ON AND 28 DAYS OFF
     Route: 055
  3. PULMOZYME [Concomitant]
     Active Substance: DORNASE ALFA
  4. PULMOZYME [Concomitant]
     Active Substance: DORNASE ALFA
  5. PULMOZYME [Concomitant]
     Active Substance: DORNASE ALFA
  6. PULMOZYME [Concomitant]
     Active Substance: DORNASE ALFA
  7. PULMOZYME [Concomitant]
     Active Substance: DORNASE ALFA
  8. SABRIL [Concomitant]
     Active Substance: VIGABATRIN
  9. SABRIL [Concomitant]
     Active Substance: VIGABATRIN
  10. SABRIL [Concomitant]
     Active Substance: VIGABATRIN
  11. SABRIL [Concomitant]
     Active Substance: VIGABATRIN
  12. SABRIL [Concomitant]
     Active Substance: VIGABATRIN
  13. TOBRAMYCIN SULFATE [Concomitant]
     Active Substance: TOBRAMYCIN SULFATE
  14. TOBRAMYCIN SULFATE [Concomitant]
     Active Substance: TOBRAMYCIN SULFATE

REACTIONS (8)
  - Illness [Unknown]
  - Rhinovirus infection [Unknown]
  - Viral infection [Unknown]
  - Pneumonia bacterial [Unknown]
  - Pneumonia [Not Recovered/Not Resolved]
  - Infection [Unknown]
  - Malaise [Unknown]
  - Product use in unapproved indication [Not Recovered/Not Resolved]
